FAERS Safety Report 18717810 (Version 1)
Quarter: 2021Q1

REPORT INFORMATION
  Report Type: Spontaneous
  Country: US (occurrence: US)
  Receive Date: 20210108
  Receipt Date: 20210108
  Transmission Date: 20210419
  Serious: Yes (Death, Hospitalization)
  Sender: FDA-Public Use
  Company Number: US-BAYER-2021-000318

PATIENT
  Age: 69 Year
  Sex: Female

DRUGS (2)
  1. BORIC ACID [Suspect]
     Active Substance: BORIC ACID
  2. PARACETAMOL [Suspect]
     Active Substance: ACETAMINOPHEN

REACTIONS (2)
  - Adverse reaction [Fatal]
  - Toxicity to various agents [Fatal]
